FAERS Safety Report 5752126-8 (Version None)
Quarter: 2008Q2

REPORT INFORMATION
  Report Type: 
  Country: None (occurrence: None)
  Receive Date: 20080529
  Receipt Date: 20071018
  Transmission Date: 20081010
  Serious: No
  Sender: FDA-Public Use
  Company Number: US-BAUSCH-2007BL003783

PATIENT
  Age: 72 Year
  Sex: Male

DRUGS (4)
  1. BRIMONIDINE TARTRATE [Suspect]
     Indication: OPEN ANGLE GLAUCOMA
     Route: 047
     Dates: start: 20070201
  2. CARTEOLOL HYDROCHLORIDE [Suspect]
     Indication: OPEN ANGLE GLAUCOMA
     Route: 047
     Dates: start: 20070201
  3. ZOLOFT [Concomitant]
     Indication: DEPRESSION
     Route: 048
  4. COUMADIN [Concomitant]
     Indication: HYPERTENSION
     Route: 048

REACTIONS (7)
  - DEPRESSION [None]
  - DIZZINESS [None]
  - EAR PAIN [None]
  - EYE PAIN [None]
  - HEADACHE [None]
  - HYPERTENSION [None]
  - SLEEP DISORDER [None]
